FAERS Safety Report 8769669 (Version 3)
Quarter: 2013Q4

REPORT INFORMATION
  Report Type: Spontaneous
  Country: US (occurrence: US)
  Receive Date: 20120905
  Receipt Date: 20131105
  Transmission Date: 20140711
  Serious: Yes (Hospitalization, Other)
  Sender: FDA-Public Use
  Company Number: US-MERCK-1208USA007223

PATIENT
  Age: 54 Year
  Sex: Male

DRUGS (3)
  1. PEG-INTRON [Suspect]
     Indication: HEPATITIS C
     Dosage: UNK
     Route: 058
     Dates: start: 20120726
  2. REBETOL [Suspect]
     Indication: HEPATITIS C
     Dosage: UNK
     Route: 048
     Dates: start: 20120726
  3. TELAPREVIR [Concomitant]
     Indication: HEPATITIS C
     Dosage: UNK
     Dates: start: 20120726

REACTIONS (18)
  - Coma [Unknown]
  - Dysarthria [Unknown]
  - Somnambulism [Unknown]
  - Adverse drug reaction [Unknown]
  - Nervousness [Unknown]
  - Pain in extremity [Unknown]
  - Dysphagia [Unknown]
  - Starvation [Unknown]
  - Fear [Unknown]
  - Chills [Unknown]
  - Chest pain [Unknown]
  - Pyrexia [Unknown]
  - Decreased appetite [Unknown]
  - Joint swelling [Unknown]
  - Tremor [Unknown]
  - Loss of control of legs [Unknown]
  - Confusional state [Unknown]
  - Headache [Unknown]
